FAERS Safety Report 16796260 (Version 1)
Quarter: 2019Q3

REPORT INFORMATION
  Report Type: Report from Study
  Country: US (occurrence: US)
  Receive Date: 20190911
  Receipt Date: 20190911
  Transmission Date: 20191005
  Serious: Yes (Hospitalization)
  Sender: FDA-Public Use
  Company Number: US-ACTELION-A-NJ2019-195380

PATIENT
  Age: 91 Year
  Sex: Female

DRUGS (13)
  1. POTASSIUM CHLORIDE. [Concomitant]
     Active Substance: POTASSIUM CHLORIDE
  2. VITAMIN B12 [Concomitant]
     Active Substance: CYANOCOBALAMIN
  3. TURMERIC [Concomitant]
     Active Substance: HERBALS\TURMERIC
  4. TRACLEER [Suspect]
     Active Substance: BOSENTAN
     Indication: PULMONARY ARTERIAL HYPERTENSION
     Dosage: 125 MG, BID
     Route: 048
     Dates: start: 20180130
  5. OMEGA 3-6-9 [Concomitant]
     Active Substance: FISH OIL
  6. ALLOPURINOL. [Concomitant]
     Active Substance: ALLOPURINOL
  7. IRON [Concomitant]
     Active Substance: IRON
  8. GINGER. [Concomitant]
     Active Substance: GINGER
  9. FUROSEMIDE. [Concomitant]
     Active Substance: FUROSEMIDE
  10. VITAMIN D3 [Concomitant]
     Active Substance: CHOLECALCIFEROL
  11. CANDESARTAN. [Concomitant]
     Active Substance: CANDESARTAN
  12. VITAMIN C [Concomitant]
     Active Substance: ASCORBIC ACID
  13. PROBIOTIC [Concomitant]
     Active Substance: PROBIOTICS NOS

REACTIONS (1)
  - Myocardial infarction [Not Recovered/Not Resolved]

NARRATIVE: CASE EVENT DATE: 201905
